FAERS Safety Report 14167804 (Version 1)
Quarter: 2017Q4

REPORT INFORMATION
  Report Type: Spontaneous
  Country: US (occurrence: US)
  Receive Date: 20171108
  Receipt Date: 20171108
  Transmission Date: 20180321
  Serious: No
  Sender: FDA-Public Use
  Company Number: PHEH2017US036085

PATIENT
  Sex: Male

DRUGS (1)
  1. AFINITOR [Suspect]
     Active Substance: EVEROLIMUS
     Indication: RENAL CELL CARCINOMA
     Route: 065

REACTIONS (11)
  - Red blood cell count decreased [Unknown]
  - Blood glucose increased [Unknown]
  - Stomatitis [Unknown]
  - Haemoglobin decreased [Unknown]
  - Haematocrit decreased [Unknown]
  - Blood sodium decreased [Unknown]
  - Rash [Unknown]
  - Blood chloride increased [Unknown]
  - Back pain [Unknown]
  - Blood creatinine increased [Unknown]
  - Constipation [Unknown]
